FAERS Safety Report 8808684 (Version 1)
Quarter: 2012Q4

REPORT INFORMATION
  Report Type: 
  Country: JP (occurrence: JP)
  Receive Date: 20120926
  Receipt Date: 20120926
  Transmission Date: 20130627
  Serious: Yes (Other)
  Sender: FDA-Public Use
  Company Number: JP-JNJFOC-20120706580

PATIENT
  Age: 8 None
  Sex: Female

DRUGS (2)
  1. TRAMCET [Suspect]
     Indication: BACK PAIN
     Route: 048
     Dates: start: 20120707, end: 20120721
  2. AN UNKNOWN MEDICATION [Suspect]
     Indication: PRODUCT USED FOR UNKNOWN INDICATION
     Route: 065

REACTIONS (2)
  - Dementia [Unknown]
  - Hallucination [Recovered/Resolved]
